FAERS Safety Report 8214377-2 (Version None)
Quarter: 2012Q1

REPORT INFORMATION
  Report Type: 
  Country: None (occurrence: None)
  Receive Date: 20120316
  Receipt Date: 20120306
  Transmission Date: 20120608
  Serious: Yes (Other)
  Sender: FDA-Public Use
  Company Number: CA-JNJFOC-20120303924

PATIENT
  Sex: Female

DRUGS (2)
  1. REMICADE [Suspect]
     Indication: CROHN'S DISEASE
     Dosage: 1ST INFUSION
     Route: 042
     Dates: start: 20110401
  2. REMICADE [Suspect]
     Dosage: 2ND INFUSION
     Route: 042
     Dates: end: 20110503

REACTIONS (3)
  - ANAPHYLACTIC REACTION [None]
  - THROAT TIGHTNESS [None]
  - URTICARIA [None]
